FAERS Safety Report 5053405-2 (Version None)
Quarter: 2006Q3

REPORT INFORMATION
  Report Type: 
  Country: None (occurrence: None)
  Receive Date: 20060712
  Receipt Date: 20060630
  Transmission Date: 20061208
  Serious: Yes (Hospitalization, Other)
  Sender: FDA-Public Use
  Company Number: 2006077879

PATIENT
  Sex: Male
  Weight: 76 kg

DRUGS (1)
  1. AMLODIPINE [Suspect]
     Indication: ANGINA PECTORIS
     Dosage: 5 MG
     Dates: start: 19930101, end: 20050601

REACTIONS (1)
  - THROMBOCYTOPENIA [None]
